FAERS Safety Report 9085384 (Version 1)
Quarter: 2013Q1

REPORT INFORMATION
  Report Type: Spontaneous
  Country: US (occurrence: US)
  Receive Date: 20130130
  Receipt Date: 20130130
  Transmission Date: 20140127
  Serious: No
  Sender: FDA-Public Use
  Company Number: US-009507513-1208USA001715

PATIENT
  Sex: Male
  Weight: 102.4 kg

DRUGS (10)
  1. VICTRELIS [Suspect]
     Dosage: 800 MG, EVERY 7-9 HOURS
     Route: 048
  2. RIBAVIRIN [Suspect]
     Dosage: 200 MG, UNK
  3. PEGASYS [Suspect]
  4. ZYRTEC [Concomitant]
     Dosage: 10 MG, UNK
     Route: 048
  5. TRAMADOL HYDROCHLORIDE [Concomitant]
     Dosage: 50 MG, UNK
     Route: 048
  6. NAPROXEN [Concomitant]
     Dosage: 250 MG, UNK
     Route: 048
  7. RANITIDINE [Concomitant]
     Dosage: 150 MG, UNK
     Route: 048
  8. ZOFRAN [Concomitant]
     Dosage: 4 MG, UNK
     Route: 048
  9. CLOBETA CREAM [Concomitant]
  10. TYLENOL [Concomitant]
     Dosage: 325 MG, UNK
     Route: 048

REACTIONS (16)
  - Discomfort [Unknown]
  - Lethargy [Unknown]
  - Chromaturia [Unknown]
  - Blood pressure increased [Unknown]
  - Pain [Unknown]
  - Oral herpes [Unknown]
  - Depression [Unknown]
  - Dry mouth [Unknown]
  - Dyspnoea [Unknown]
  - Headache [Unknown]
  - Dizziness [Unknown]
  - Nausea [Unknown]
  - Dysgeusia [Unknown]
  - Headache [Unknown]
  - Vertigo [Unknown]
  - White blood cell count decreased [Unknown]
